FAERS Safety Report 4952909-8 (Version None)
Quarter: 2006Q2

REPORT INFORMATION
  Report Type: 
  Country: None (occurrence: None)
  Receive Date: 20060321
  Receipt Date: 20060306
  Transmission Date: 20061013
  Serious: Yes (Death)
  Sender: FDA-Public Use
  Company Number: 2006000548

PATIENT
  Age: 55 Year
  Sex: Female

DRUGS (4)
  1. TARCEVA [Suspect]
     Indication: GASTRIC CANCER
     Dosage: INTRAVENOUS
     Route: 042
     Dates: start: 20051101
  2. AVASTIN [Suspect]
     Indication: GASTRIC CANCER
     Dosage: INTRAVENOUS
     Route: 042
     Dates: start: 20051101
  3. IRINOTECAN HCL [Concomitant]
  4. DOCETAXEL (DOCETAXEL) [Concomitant]

REACTIONS (3)
  - INTRACRANIAL PRESSURE INCREASED [None]
  - INTRACRANIAL VENOUS SINUS THROMBOSIS [None]
  - MALIGNANT NEOPLASM PROGRESSION [None]
